FAERS Safety Report 7764622-2 (Version None)
Quarter: 2011Q3

REPORT INFORMATION
  Report Type: 
  Country: None (occurrence: None)
  Receive Date: 20110921
  Receipt Date: 20110910
  Transmission Date: 20111222
  Serious: Yes (Other)
  Sender: FDA-Public Use
  Company Number: PHHY2011CA82197

PATIENT
  Sex: Female

DRUGS (2)
  1. RITALIN [Suspect]
     Dosage: UNK UKN, OT
  2. ORTHO EVRA [Concomitant]
     Indication: CONTRACEPTION
     Dosage: UNK UG/ML, OT

REACTIONS (3)
  - MULTIPLE SCLEROSIS [None]
  - FATIGUE [None]
  - HYPOAESTHESIA [None]
